FAERS Safety Report 8271187-8 (Version None)
Quarter: 2012Q2

REPORT INFORMATION
  Report Type: 
  Country: None (occurrence: None)
  Receive Date: 20120410
  Receipt Date: 20120403
  Transmission Date: 20120825
  Serious: No
  Sender: FDA-Public Use
  Company Number: US-B.I. PHARMACEUTICALS,INC./RIDGEFIELD-2012-BP-06214BP

PATIENT
  Sex: Male

DRUGS (11)
  1. METFORMIN HCL [Concomitant]
     Indication: DIABETES MELLITUS
  2. STOOL SOFTENER [Concomitant]
     Indication: CONSTIPATION
  3. SULINDAC [Concomitant]
     Indication: GOUT
  4. CITALOPRAM HYDROBROMIDE [Concomitant]
  5. LEVOXYL [Concomitant]
     Indication: HYPOTHYROIDISM
  6. LOSARTAN POTASSIUM [Concomitant]
     Indication: HYPERTENSION
  7. ALLOPURINOL [Concomitant]
     Indication: GOUT
  8. PRADAXA [Suspect]
     Indication: ATRIAL FIBRILLATION
     Dosage: 300 MG
     Route: 048
     Dates: start: 20120201
  9. CLONAZEPAM [Concomitant]
  10. SAW PALMETTO [Concomitant]
     Indication: SUPPLEMENTATION THERAPY
  11. PROBIOTIC [Concomitant]
     Indication: SUPPLEMENTATION THERAPY

REACTIONS (2)
  - THROAT IRRITATION [None]
  - DYSPEPSIA [None]
